FAERS Safety Report 5348122-5 (Version None)
Quarter: 2007Q2

REPORT INFORMATION
  Report Type: 
  Country: None (occurrence: None)
  Receive Date: 20070606
  Receipt Date: 20070531
  Transmission Date: 20071010
  Serious: Yes (Other)
  Sender: FDA-Public Use
  Company Number: US-PFIZER INC-2007045131

PATIENT
  Sex: Female
  Weight: 84 kg

DRUGS (4)
  1. CELEBREX [Suspect]
     Indication: INFLAMMATION
  2. CELEBREX [Suspect]
     Indication: ARTHROPATHY
  3. TYLENOL [Concomitant]
  4. IBUPROFEN [Concomitant]

REACTIONS (3)
  - CONDITION AGGRAVATED [None]
  - DRUG INEFFECTIVE [None]
  - HIP ARTHROPLASTY [None]
